FAERS Safety Report 15246170 (Version 1)
Quarter: 2018Q3

REPORT INFORMATION
  Report Type: Spontaneous
  Country: US (occurrence: US)
  Receive Date: 20180713
  Receipt Date: 20180713
  Transmission Date: 20181010
  Serious: Yes (Life-Threatening, Hospitalization, Disabling, Other)
  Sender: FDA-Public Use
  Company Number: None

PATIENT
  Age: 38 Year
  Sex: Female
  Weight: 58.5 kg

DRUGS (13)
  1. TUNA OMEGA [Concomitant]
  2. DRENAMIN [Concomitant]
  3. ENZYCORE CATAPLEX B [Concomitant]
  4. IMMUPLEX [Concomitant]
  5. CARDIO PLUS [Concomitant]
  6. MULTIPLE VITAMIN [Concomitant]
     Active Substance: VITAMINS
  7. TUMERIC [Concomitant]
     Active Substance: HERBALS\TURMERIC
  8. TAYTULLA [Suspect]
     Active Substance: ETHINYL ESTRADIOL\NORETHINDRONE ACETATE
     Indication: MALAISE
     Dosage: ?          QUANTITY:1 TABLET(S);?
     Route: 048
     Dates: start: 20170619, end: 20170627
  9. TAYTULLA [Suspect]
     Active Substance: ETHINYL ESTRADIOL\NORETHINDRONE ACETATE
     Indication: DYSMENORRHOEA
     Dosage: ?          QUANTITY:1 TABLET(S);?
     Route: 048
     Dates: start: 20170619, end: 20170627
  10. BETA BLOCKER [Concomitant]
     Active Substance: UNSPECIFIED INGREDIENT
  11. VITAMINS [Concomitant]
     Active Substance: VITAMINS
  12. TAYTULLA [Suspect]
     Active Substance: ETHINYL ESTRADIOL\NORETHINDRONE ACETATE
     Indication: VOMITING
     Dosage: ?          QUANTITY:1 TABLET(S);?
     Route: 048
     Dates: start: 20170619, end: 20170627
  13. TAYTULLA [Suspect]
     Active Substance: ETHINYL ESTRADIOL\NORETHINDRONE ACETATE
     Indication: DIARRHOEA
     Dosage: ?          QUANTITY:1 TABLET(S);?
     Route: 048
     Dates: start: 20170619, end: 20170627

REACTIONS (12)
  - Loss of consciousness [None]
  - Dizziness [None]
  - Loss of personal independence in daily activities [None]
  - Fatigue [None]
  - Mitral valve incompetence [None]
  - Ventricular tachycardia [None]
  - Anxiety [None]
  - Seizure [None]
  - Gait disturbance [None]
  - Mitral valve prolapse [None]
  - Cardiac arrest [None]
  - Dysstasia [None]

NARRATIVE: CASE EVENT DATE: 20170627
